FAERS Safety Report 13633976 (Version 1)
Quarter: 2017Q2

REPORT INFORMATION
  Report Type: Spontaneous
  Country: US (occurrence: US)
  Receive Date: 20170531
  Receipt Date: 20170531
  Transmission Date: 20170830
  Serious: No
  Sender: FDA-Public Use
  Company Number: US-ASTELLAS-1593957

PATIENT
  Age: 75 Year
  Sex: Female

DRUGS (19)
  1. ALLEGRA [Concomitant]
     Active Substance: FEXOFENADINE HYDROCHLORIDE
  2. AMBIEN [Concomitant]
     Active Substance: ZOLPIDEM TARTRATE
  3. VITAMIN C [Concomitant]
     Active Substance: ASCORBIC ACID
  4. DIAZEPAM. [Concomitant]
     Active Substance: DIAZEPAM
     Route: 065
  5. VAGIFEM [Concomitant]
     Active Substance: ESTRADIOL
  6. SYNTHROID [Concomitant]
     Active Substance: LEVOTHYROXINE SODIUM
  7. TRAMADOL HCL [Concomitant]
     Active Substance: TRAMADOL HYDROCHLORIDE
  8. TARCEVA [Suspect]
     Active Substance: ERLOTINIB HYDROCHLORIDE
     Indication: LUNG NEOPLASM MALIGNANT
     Route: 048
     Dates: start: 20150318
  9. LACTAID (UNITED STATES) [Concomitant]
  10. CALCIUM ACETATE. [Concomitant]
     Active Substance: CALCIUM ACETATE
  11. NASALCROM [Concomitant]
     Active Substance: CROMOLYN SODIUM
  12. FLECTOR [Concomitant]
     Active Substance: DICLOFENAC EPOLAMINE
  13. LUMIGAN [Concomitant]
     Active Substance: BIMATOPROST
  14. VITAMIN D3 [Concomitant]
     Active Substance: CHOLECALCIFEROL
  15. BORAGE OIL [Concomitant]
     Active Substance: BORAGE OIL
  16. EVISTA [Concomitant]
     Active Substance: RALOXIFENE HYDROCHLORIDE
  17. AMBIEN CR [Concomitant]
     Active Substance: ZOLPIDEM TARTRATE
  18. BIOTIN [Concomitant]
     Active Substance: BIOTIN
  19. ZANTAC [Concomitant]
     Active Substance: RANITIDINE HYDROCHLORIDE
     Route: 065

REACTIONS (1)
  - Rash [Unknown]
